FAERS Safety Report 5468434-4 (Version None)
Quarter: 2007Q3

REPORT INFORMATION
  Report Type: 
  Country: None (occurrence: None)
  Receive Date: 20070926
  Receipt Date: 20070924
  Transmission Date: 20080115
  Serious: Yes (Death, Other)
  Sender: FDA-Public Use
  Company Number: NL-BRISTOL-MYERS SQUIBB COMPANY-13917380

PATIENT
  Age: 43 Year
  Sex: Male

DRUGS (4)
  1. BLEOMYCIN [Suspect]
     Indication: TESTIS CANCER
     Dosage: 30 UNITS ON 1,8,15 DAYS.
  2. ETOPOSIDE [Suspect]
  3. CISPLATIN [Suspect]
     Dosage: ON DAY ONE AND DAY 5.
  4. NEUPOGEN [Suspect]

REACTIONS (9)
  - DEEP VEIN THROMBOSIS [None]
  - FEBRILE NEUTROPENIA [None]
  - LUNG CONSOLIDATION [None]
  - NERVOUSNESS [None]
  - PLEURAL EFFUSION [None]
  - PNEUMOMEDIASTINUM [None]
  - RESPIRATORY FAILURE [None]
  - SCROTAL ABSCESS [None]
  - SUBCUTANEOUS EMPHYSEMA [None]
